FAERS Safety Report 19277527 (Version 1)
Quarter: 2021Q2

REPORT INFORMATION
  Report Type: Report from Study
  Country: GB (occurrence: GB)
  Receive Date: 20210520
  Receipt Date: 20210520
  Transmission Date: 20210717
  Serious: Yes (Hospitalization, Other)
  Sender: FDA-Public Use
  Company Number: GB-TAKEDA-2021TUS024770

PATIENT
  Age: 63 Year
  Sex: Male

DRUGS (1)
  1. IXAZOMIB [Suspect]
     Active Substance: IXAZOMIB
     Indication: PLASMA CELL MYELOMA
     Dosage: 4 MILLIGRAM
     Route: 048
     Dates: start: 20210410

REACTIONS (8)
  - Nausea [Unknown]
  - Infection [Recovering/Resolving]
  - Malaise [Unknown]
  - Back pain [Unknown]
  - Pneumonia [Recovering/Resolving]
  - Neutropenic sepsis [Recovering/Resolving]
  - Chest pain [Unknown]
  - Pyrexia [Recovering/Resolving]

NARRATIVE: CASE EVENT DATE: 20210410
